FAERS Safety Report 6920331-0 (Version None)
Quarter: 2010Q3

REPORT INFORMATION
  Report Type: 
  Country: None (occurrence: None)
  Receive Date: 20100809
  Receipt Date: 20100802
  Transmission Date: 20110219
  Serious: Yes (Other)
  Sender: FDA-Public Use
  Company Number: 20109101

PATIENT
  Sex: Female

DRUGS (4)
  1. LIORESAL [Suspect]
     Indication: MUSCLE SPASTICITY
     Dosage: DAILY, INTRATHECAL
     Route: 037
  2. SUFENTANIL [Concomitant]
  3. BUPIVACAINE HCL [Concomitant]
  4. PRIALT [Concomitant]

REACTIONS (4)
  - INFLAMMATION [None]
  - LETHARGY [None]
  - MASS [None]
  - MEDICAL DEVICE COMPLICATION [None]
